FAERS Safety Report 20964205 (Version 1)
Quarter: 2022Q2

REPORT INFORMATION
  Report Type: Spontaneous
  Country: US (occurrence: US)
  Receive Date: 20220615
  Receipt Date: 20220615
  Transmission Date: 20220721
  Serious: Yes (Other)
  Sender: FDA-Public Use
  Company Number: US-UPSHER-SMITH LABORATORIES, LLC-2022USL00258

PATIENT
  Age: 22 Year
  Sex: Male
  Weight: 52.154 kg

DRUGS (3)
  1. ISOTRETINOIN [Suspect]
     Active Substance: ISOTRETINOIN
     Indication: Acne
     Dosage: 40 MG, 1X/DAY, FOR 1 MONTH
     Route: 048
     Dates: start: 20211202, end: 202201
  2. ISOTRETINOIN [Suspect]
     Active Substance: ISOTRETINOIN
     Dosage: 40 MG, 2X/DAY FOR 1 MONTH
     Route: 048
     Dates: start: 202201, end: 202202
  3. ISOTRETINOIN [Suspect]
     Active Substance: ISOTRETINOIN
     Indication: Acne
     Dosage: 30 MG, 2X/DAY
     Route: 048
     Dates: start: 20220208, end: 20220406

REACTIONS (6)
  - Anxiety [Recovered/Resolved]
  - Anal fissure [Recovered/Resolved]
  - Abdominal pain upper [Recovered/Resolved]
  - Eczema [Recovered/Resolved]
  - Epistaxis [Recovered/Resolved]
  - Inappropriate schedule of product administration [Recovered/Resolved]

NARRATIVE: CASE EVENT DATE: 20211202
